FAERS Safety Report 10254815 (Version 4)
Quarter: 2014Q3

REPORT INFORMATION
  Report Type: Spontaneous
  Country: GB (occurrence: GB)
  Receive Date: 20140624
  Receipt Date: 20140819
  Transmission Date: 20150326
  Serious: No
  Sender: FDA-Public Use
  Company Number: GB-JNJFOC-20140607808

PATIENT
  Age: 54 Year
  Sex: Male

DRUGS (14)
  1. ADCAL-D3 [Concomitant]
     Active Substance: CALCIUM CARBONATE\CHOLECALCIFEROL
     Route: 048
  2. PREDNISOLONE. [Concomitant]
     Active Substance: PREDNISOLONE
     Route: 048
  3. ALLOPURINOL. [Concomitant]
     Active Substance: ALLOPURINOL
     Dosage: AFTER FOOD
     Route: 048
  4. POLYTAR AF [Concomitant]
     Dosage: AS DIRECTED
     Route: 065
  5. DURAGESIC [Suspect]
     Active Substance: FENTANYL
     Indication: PRODUCT USED FOR UNKNOWN INDICATION
     Route: 062
  6. METOJECT [Concomitant]
     Active Substance: METHOTREXATE SODIUM
     Route: 065
  7. COCODAMOL [Concomitant]
     Active Substance: ACETAMINOPHEN\CODEINE PHOSPHATE
     Dosage: 1-2 TABLETS
     Route: 048
  8. LOPERAMIDE [Concomitant]
     Active Substance: LOPERAMIDE
     Dosage: AS DIRECTED
     Route: 048
  9. RISEDRONATE SODIUM. [Concomitant]
     Active Substance: RISEDRONATE SODIUM
     Route: 048
  10. HUMIRA [Concomitant]
     Active Substance: ADALIMUMAB
     Route: 065
  11. OMEPRAZOLE. [Concomitant]
     Active Substance: OMEPRAZOLE
     Route: 048
  12. CAPASAL [Concomitant]
     Dosage: AS DIRECTED
     Route: 065
  13. ALLOPURINOL. [Concomitant]
     Active Substance: ALLOPURINOL
     Dosage: AT NIGHT
     Route: 048
  14. ATENOLOL. [Concomitant]
     Active Substance: ATENOLOL
     Route: 048

REACTIONS (6)
  - Joint swelling [Recovered/Resolved]
  - Skin irritation [Recovered/Resolved]
  - Pruritus [Unknown]
  - Inappropriate schedule of drug administration [Unknown]
  - Insomnia [Recovered/Resolved]
  - Paraesthesia [Unknown]

NARRATIVE: CASE EVENT DATE: 201405
